FAERS Safety Report 7340681-6 (Version None)
Quarter: 2011Q1

REPORT INFORMATION
  Report Type: 
  Country: None (occurrence: None)
  Receive Date: 20110309
  Receipt Date: 20110303
  Transmission Date: 20110831
  Serious: No
  Sender: FDA-Public Use
  Company Number: JP-ROCHE-761794

PATIENT
  Sex: Female
  Weight: 48 kg

DRUGS (21)
  1. TOCILIZUMAB [Suspect]
     Route: 041
     Dates: start: 20090721, end: 20090721
  2. TOCILIZUMAB [Suspect]
     Route: 041
     Dates: start: 20091013, end: 20091013
  3. ONEALFA [Concomitant]
     Dosage: DOSE FORM: PERORAL AGENT
     Route: 048
  4. TOCILIZUMAB [Suspect]
     Route: 041
     Dates: start: 20090915, end: 20090915
  5. TOCILIZUMAB [Suspect]
     Route: 041
     Dates: start: 20091110, end: 20091110
  6. NORVASC [Suspect]
     Indication: HYPERTENSION
     Dosage: DOSE FORM: PERORAL AGENT
     Route: 048
  7. GLAKAY [Concomitant]
     Dosage: DOSE FORM: PERORAL AGENT
     Route: 048
  8. TOCILIZUMAB [Suspect]
     Route: 041
     Dates: start: 20090818, end: 20090818
  9. TOCILIZUMAB [Suspect]
     Route: 041
     Dates: start: 20100406, end: 20100406
  10. TOCILIZUMAB [Suspect]
     Route: 041
     Dates: start: 20100511, end: 20100511
  11. TOCILIZUMAB [Suspect]
     Dosage: DOSE DECREASED
     Route: 041
     Dates: start: 20091215, end: 20091215
  12. TOCILIZUMAB [Suspect]
     Route: 041
     Dates: start: 20100120, end: 20100120
  13. LOXOPROFEN SODIUM [Suspect]
     Indication: RHEUMATOID ARTHRITIS
     Dosage: DOSE FORM: PERORAL AGENT
     Route: 048
  14. SELBEX [Concomitant]
     Dosage: DOSE FORM: PERORAL AGENT
     Route: 048
  15. ROHYPNOL [Concomitant]
     Route: 048
  16. HYALEIN [Concomitant]
     Dosage: DOSE FORM: EYE DROP, PROPER QUANTITY
     Route: 047
  17. TOCILIZUMAB [Suspect]
     Indication: RHEUMATOID ARTHRITIS
     Route: 041
     Dates: start: 20090616, end: 20090616
  18. TOCILIZUMAB [Suspect]
     Route: 041
     Dates: start: 20100209, end: 20100209
  19. TOCILIZUMAB [Suspect]
     Route: 041
     Dates: start: 20100608, end: 20100608
  20. PREDONINE [Concomitant]
     Dosage: DOSE FORM: PERORAL AGENT
     Route: 048
  21. POTASSIUM L-ASPARTATE [Concomitant]
     Dosage: DOSE FORM: PERORAL AGENT
     Route: 048

REACTIONS (1)
  - HEPATIC FUNCTION ABNORMAL [None]
